FAERS Safety Report 10102431 (Version 2)
Quarter: 2014Q2

REPORT INFORMATION
  Report Type: Other
  Country: US (occurrence: US)
  Receive Date: 20140424
  Receipt Date: 20140629
  Transmission Date: 20141212
  Serious: Yes (Hospitalization, Other)
  Sender: FDA-Public Use
  Company Number: US-GSKPPD-2014GSK000399

PATIENT
  Age: 46 Year
  Sex: Male

DRUGS (6)
  1. AVANDIA [Suspect]
     Indication: DIABETES MELLITUS
     Route: 048
     Dates: start: 200708
  2. ASPIRIN [Concomitant]
     Route: 048
     Dates: start: 200708
  3. LOPRESSOR [Concomitant]
     Dates: start: 200708
  4. NIFEDIPINE [Concomitant]
     Dates: start: 200708
  5. LASIX [Concomitant]
     Dates: start: 200708
  6. NIFEDIAC [Concomitant]
     Route: 048
     Dates: start: 20071108

REACTIONS (2)
  - Myocardial infarction [None]
  - Arteriogram coronary [Recovered/Resolved]
